FAERS Safety Report 22066309 (Version 1)
Quarter: 2023Q1

REPORT INFORMATION
  Report Type: Spontaneous
  Country: US (occurrence: US)
  Receive Date: 20230306
  Receipt Date: 20230306
  Transmission Date: 20230417
  Serious: Yes (Other)
  Sender: FDA-Public Use
  Company Number: US-MYLANLABS-2023M1021732

PATIENT
  Sex: Female
  Weight: 58.05 kg

DRUGS (2)
  1. LATANOPROST [Suspect]
     Active Substance: LATANOPROST
     Indication: Glaucoma
     Dosage: 50 MICROGRAM QD (ONCE A DAY AT NIGHT, ONE DROP ONCE A DAY)
     Route: 047
     Dates: start: 20230202
  2. COMBIGAN [Concomitant]
     Active Substance: BRIMONIDINE TARTRATE\TIMOLOL MALEATE
     Dosage: UNK (TO BE USED TWICE A DAY)
     Route: 065

REACTIONS (3)
  - Blindness [Unknown]
  - Visual impairment [Unknown]
  - Vision blurred [Unknown]
